FAERS Safety Report 23916050 (Version 1)
Quarter: 2024Q2

REPORT INFORMATION
  Report Type: Spontaneous
  Country: US (occurrence: US)
  Receive Date: 20240529
  Receipt Date: 20240529
  Transmission Date: 20240716
  Serious: No
  Sender: FDA-Public Use
  Company Number: US-SA-SAC20240522000972

PATIENT
  Sex: Female

DRUGS (13)
  1. DUPIXENT [Suspect]
     Active Substance: DUPILUMAB
     Indication: Dermatitis atopic
     Dosage: 300 MG, QOW
     Route: 058
     Dates: start: 20220322
  2. CEPHALEXIN [Concomitant]
     Active Substance: CEPHALEXIN
  3. CLOBETASOL [Concomitant]
     Active Substance: CLOBETASOL
  4. ELIDEL [Concomitant]
     Active Substance: PIMECROLIMUS
  5. EPIPEN [Concomitant]
     Active Substance: EPINEPHRINE
  6. EUCRISA [Concomitant]
     Active Substance: CRISABOROLE
  7. FLUCONAZOLE [Concomitant]
     Active Substance: FLUCONAZOLE
  8. GLIPIZIDE [Concomitant]
     Active Substance: GLIPIZIDE
  9. LEXAPRO [Concomitant]
     Active Substance: ESCITALOPRAM OXALATE
  10. LIPITOR [Concomitant]
     Active Substance: ATORVASTATIN CALCIUM
  11. MUPIROCIN [Concomitant]
     Active Substance: MUPIROCIN
  12. VITAMIN D NOS [Concomitant]
     Active Substance: CHOLECALCIFEROL\ERGOCALCIFEROL
  13. ZYRTEC [Concomitant]
     Active Substance: CETIRIZINE HYDROCHLORIDE

REACTIONS (3)
  - Weight decreased [Unknown]
  - Cough [Unknown]
  - Infection [Unknown]
